FAERS Safety Report 9438429 (Version 2)
Quarter: 2014Q1

REPORT INFORMATION
  Report Type: Spontaneous
  Country: US (occurrence: US)
  Receive Date: 20130802
  Receipt Date: 20140110
  Transmission Date: 20141002
  Serious: Yes (Hospitalization)
  Sender: FDA-Public Use
  Company Number: US-B.I. PHARMACEUTICALS,INC./RIDGEFIELD-2013-BI-23023BP

PATIENT
  Sex: Female
  Weight: 65.77 kg

DRUGS (7)
  1. PRADAXA [Suspect]
     Dates: start: 20120526, end: 20120829
  2. PLAVIX [Suspect]
  3. NAPROXEN [Concomitant]
  4. GLUCOTROL [Concomitant]
     Dates: start: 2008, end: 201305
  5. CLONIDINE [Concomitant]
     Dates: start: 2008, end: 201305
  6. KEFLEX [Concomitant]
  7. NORVASC [Concomitant]

REACTIONS (7)
  - Upper gastrointestinal haemorrhage [Unknown]
  - Appendicitis [Unknown]
  - Anaemia [Unknown]
  - Renal failure [Unknown]
  - Respiratory failure [Unknown]
  - Cardiac failure [Unknown]
  - Haematuria [Unknown]
